FAERS Safety Report 6846882-5 (Version None)
Quarter: 2010Q3

REPORT INFORMATION
  Report Type: 
  Country: None (occurrence: None)
  Receive Date: 20100715
  Receipt Date: 20070922
  Transmission Date: 20110219
  Serious: No
  Sender: FDA-Public Use
  Company Number: US-PFIZER INC-2007080561

PATIENT
  Sex: Male
  Weight: 77.272 kg

DRUGS (4)
  1. CHANTIX [Suspect]
     Indication: SMOKING CESSATION THERAPY
     Route: 048
     Dates: start: 20070805, end: 20070901
  2. ALBUTEROL [Concomitant]
  3. PULMICORT [Concomitant]
  4. ATROVENT [Concomitant]

REACTIONS (3)
  - NOCTURIA [None]
  - POOR QUALITY SLEEP [None]
  - VISION BLURRED [None]
